FAERS Safety Report 10742350 (Version 1)
Quarter: 2015Q1

REPORT INFORMATION
  Report Type: Spontaneous
  Country: US (occurrence: None)
  Receive Date: 20150123
  Receipt Date: 20150123
  Transmission Date: 20150721
  Serious: No
  Sender: FDA-Public Use
  Company Number: None

PATIENT
  Age: 62 Year
  Sex: Male
  Weight: 146.51 kg

DRUGS (1)
  1. LEXISCAN [Suspect]
     Active Substance: REGADENOSON
     Indication: CARDIAC STRESS TEST
     Dosage: INTO A VEIN
     Route: 042
     Dates: start: 20150122

REACTIONS (3)
  - Dyspnoea [None]
  - Throat tightness [None]
  - Tremor [None]

NARRATIVE: CASE EVENT DATE: 20150122
